FAERS Safety Report 4821797-2 (Version None)
Quarter: 2005Q4

REPORT INFORMATION
  Report Type: 
  Country: None (occurrence: None)
  Receive Date: 20051107
  Receipt Date: 20050322
  Transmission Date: 20060501
  Serious: Yes (Death)
  Sender: FDA-Public Use
  Company Number: CA-SANOFI-SYNTHELABO-F01200500447

PATIENT
  Sex: Female

DRUGS (6)
  1. OXALIPLATIN [Suspect]
     Indication: COLORECTAL CANCER METASTATIC
     Route: 042
     Dates: start: 20041220
  2. CAPECITABINE [Suspect]
     Indication: COLORECTAL CANCER METASTATIC
     Route: 048
     Dates: start: 20041220
  3. BEVACIZUMAB OR PLACEBO [Suspect]
     Indication: COLORECTAL CANCER METASTATIC
     Route: 042
     Dates: start: 20041220
  4. MS CONTIN [Concomitant]
     Dosage: UNK
     Route: 065
     Dates: start: 20041220
  5. K-DUR 10 [Concomitant]
     Dosage: UNK
     Route: 065
     Dates: start: 20050221
  6. LORAZEPAM [Concomitant]
     Dosage: UNK
     Route: 065
     Dates: start: 20050115

REACTIONS (4)
  - ARRHYTHMIA [None]
  - SUDDEN DEATH [None]
  - TUMOUR LYSIS SYNDROME [None]
  - TUMOUR NECROSIS [None]
